FAERS Safety Report 16145507 (Version 1)
Quarter: 2019Q2

REPORT INFORMATION
  Report Type: Spontaneous
  Country: GB (occurrence: GB)
  Receive Date: 20190402
  Receipt Date: 20190402
  Transmission Date: 20190711
  Serious: Yes (Other)
  Sender: FDA-Public Use
  Company Number: GB-ACCORD-116828

PATIENT
  Age: 57 Year
  Sex: Male
  Weight: 54 kg

DRUGS (10)
  1. TEMAZEPAM. [Concomitant]
     Active Substance: TEMAZEPAM
     Dosage: AT NIGHT
     Dates: start: 20180522
  2. FULTIUM-D3 [Concomitant]
     Active Substance: CHOLECALCIFEROL
     Dates: start: 20180522
  3. AMLODIPINE [Suspect]
     Active Substance: AMLODIPINE BESYLATE
     Indication: PRODUCT USED FOR UNKNOWN INDICATION
     Dates: start: 20180521
  4. LEVETIRACETAM. [Concomitant]
     Active Substance: LEVETIRACETAM
     Dates: start: 20180809, end: 20190114
  5. CLOPIDOGREL [Concomitant]
     Active Substance: CLOPIDOGREL BISULFATE
     Dates: start: 20180522
  6. PYRIDOXINE [Concomitant]
     Active Substance: PYRIDOXINE
     Dates: start: 20180629
  7. LOSARTAN. [Concomitant]
     Active Substance: LOSARTAN
     Dates: start: 20180522
  8. BRIVARACETAM [Concomitant]
     Active Substance: BRIVARACETAM
     Dosage: TO BE TAKEN EACH NIGHT FOR ONE MONTH AND THEN...
     Dates: start: 20190115
  9. TAPENTADOL [Concomitant]
     Active Substance: TAPENTADOL
     Dosage: 100MG IN THE MORNING, 50MG IN AFTERNOON AND 50MG TO BE TA...
     Dates: start: 20180522
  10. ATORVASTATIN [Concomitant]
     Active Substance: ATORVASTATIN
     Dates: start: 20180522

REACTIONS (5)
  - Dizziness [Unknown]
  - Abdominal pain lower [Unknown]
  - Drug hypersensitivity [Unknown]
  - Disorientation [Unknown]
  - Abdominal distension [Unknown]
